FAERS Safety Report 20833055 (Version 4)
Quarter: 2022Q3

REPORT INFORMATION
  Report Type: Spontaneous
  Country: BR (occurrence: BR)
  Receive Date: 20220516
  Receipt Date: 20220928
  Transmission Date: 20221027
  Serious: Yes (Other)
  Sender: FDA-Public Use
  Company Number: BR-BAXTER-2022BAX009788

PATIENT
  Age: 45 Year
  Sex: Female

DRUGS (2)
  1. IRON [Suspect]
     Active Substance: IRON
     Indication: Anaemia
     Dosage: 5 ML DILUTED IN 250 ML OF 0.9% SALINE SOLUTION, ENDOVENOUS ROUTE
     Route: 042
     Dates: start: 20220430, end: 20220430
  2. SODIUM CHLORIDE [Suspect]
     Active Substance: SODIUM CHLORIDE
     Indication: Medication dilution
     Dosage: 250 ML, ENDOVENOUS ROUTE
     Route: 042
     Dates: start: 20220430, end: 20220430

REACTIONS (12)
  - Hypertensive crisis [Recovered/Resolved]
  - Cyanosis [Recovered/Resolved]
  - Malaise [Recovered/Resolved]
  - Chest pain [Recovered/Resolved]
  - Syncope [Recovered/Resolved]
  - Dry mouth [Recovered/Resolved]
  - Abdominal distension [Recovered/Resolved]
  - Poor quality product administered [Unknown]
  - Product quality issue [Unknown]
  - Symptom recurrence [Recovered/Resolved]
  - Pain in extremity [Recovered/Resolved]
  - Symptom recurrence [Recovered/Resolved]

NARRATIVE: CASE EVENT DATE: 20220430
